FAERS Safety Report 16684091 (Version 2)
Quarter: 2019Q3

REPORT INFORMATION
  Report Type: Spontaneous
  Country: JP (occurrence: JP)
  Receive Date: 20190808
  Receipt Date: 20190823
  Transmission Date: 20191004
  Serious: Yes (Hospitalization)
  Sender: FDA-Public Use
  Company Number: JP-JNJFOC-20190809766

PATIENT
  Age: 73 Year
  Sex: Male

DRUGS (1)
  1. ONEDURO [Suspect]
     Active Substance: FENTANYL
     Indication: PAIN
     Dosage: UNKNOWN
     Route: 062

REACTIONS (1)
  - Pneumonia [Not Recovered/Not Resolved]

NARRATIVE: CASE EVENT DATE: 20190716
